FAERS Safety Report 11707534 (Version 1)
Quarter: 2015Q4

REPORT INFORMATION
  Report Type: Spontaneous
  Country: SE (occurrence: SE)
  Receive Date: 20151106
  Receipt Date: 20151106
  Transmission Date: 20160304
  Serious: Yes (Other)
  Sender: FDA-Public Use
  Company Number: SE-009507513-1511SWE003256

PATIENT
  Age: 74 Year
  Sex: Female

DRUGS (11)
  1. NATRIUMBIKARBONAT FRESENIUS KABI [Concomitant]
  2. LASIX [Concomitant]
     Active Substance: FUROSEMIDE
  3. EZETROL 10 MG TABLETTER [Suspect]
     Active Substance: EZETIMIBE
     Indication: HYPERLIPIDAEMIA
     Route: 048
     Dates: start: 20150112, end: 20150722
  4. IMOVANE [Concomitant]
     Active Substance: ZOPICLONE
     Dosage: AS NECESSARY
  5. ALVEDON [Concomitant]
     Active Substance: ACETAMINOPHEN
     Dosage: AS NECESSARY
  6. ETALPHA [Concomitant]
     Active Substance: ALFACALCIDOL
  7. TAVEGYL [Concomitant]
     Active Substance: CLEMASTINE FUMARATE
     Dosage: AS NECESSARY
  8. FELODIPINE. [Concomitant]
     Active Substance: FELODIPINE
  9. ESOMEPRAZOLE MAGNESIUM. [Concomitant]
     Active Substance: ESOMEPRAZOLE MAGNESIUM
  10. ATENOLOL. [Concomitant]
     Active Substance: ATENOLOL
  11. APROVEL [Concomitant]
     Active Substance: IRBESARTAN

REACTIONS (1)
  - Muscle rupture [Not Recovered/Not Resolved]

NARRATIVE: CASE EVENT DATE: 20150716
